FAERS Safety Report 9299416 (Version 2)
Quarter: 2013Q3

REPORT INFORMATION
  Report Type: Spontaneous
  Country: US (occurrence: US)
  Receive Date: 20130520
  Receipt Date: 20130828
  Transmission Date: 20140515
  Serious: No
  Sender: FDA-Public Use
  Company Number: US-009507513-1305USA011850

PATIENT
  Sex: Female
  Weight: 58.96 kg

DRUGS (8)
  1. CLARITIN LIQUIGELS [Suspect]
     Indication: HYPERSENSITIVITY
     Dosage: 10 MG, QD
     Route: 048
  2. CLARITIN LIQUIGELS [Suspect]
     Indication: LACRIMATION INCREASED
  3. CLARITIN LIQUIGELS [Suspect]
     Indication: EYE PRURITUS
  4. CLARITIN LIQUIGELS [Suspect]
     Indication: RHINORRHOEA
  5. REGORAFENIB [Concomitant]
     Indication: NEOPLASM MALIGNANT
     Dosage: UNK, UNKNOWN
  6. IRON (UNSPECIFIED) [Concomitant]
     Indication: BLOOD IRON DECREASED
     Dosage: UNK, UNKNOWN
  7. METOPROLOL [Concomitant]
     Indication: PRODUCT USED FOR UNKNOWN INDICATION
     Dosage: UNK, UNKNOWN
  8. CALCIUM (UNSPECIFIED) [Concomitant]
     Indication: PRODUCT USED FOR UNKNOWN INDICATION
     Dosage: UNK, UNKNOWN

REACTIONS (1)
  - Drug ineffective [Unknown]
